FAERS Safety Report 8287723-1 (Version None)
Quarter: 2012Q2

REPORT INFORMATION
  Report Type: 
  Country: None (occurrence: None)
  Receive Date: 20120416
  Receipt Date: 20120405
  Transmission Date: 20120825
  Serious: Yes (Hospitalization, Other)
  Sender: FDA-Public Use
  Company Number: JP-CELGENEUS-087-21880-10100394

PATIENT
  Sex: Female
  Weight: 39.9 kg

DRUGS (25)
  1. DEXAMETHASONE ACETATE [Suspect]
     Dosage: 12 MILLIGRAM
     Route: 048
     Dates: start: 20100928, end: 20100929
  2. DEXAMETHASONE ACETATE [Suspect]
     Dosage: 12 MILLIGRAM
     Route: 048
     Dates: start: 20101005, end: 20101006
  3. DEXAMETHASONE ACETATE [Suspect]
     Dosage: 12 MILLIGRAM
     Route: 048
     Dates: start: 20101026, end: 20101027
  4. OMEPRAZOLE [Concomitant]
     Indication: PROPHYLAXIS
     Dosage: 20 MILLIGRAM
     Route: 048
     Dates: start: 20100827, end: 20100830
  5. REVLIMID [Suspect]
     Dosage: 10 MILLIGRAM
     Route: 048
     Dates: start: 20101126, end: 20101216
  6. DEXAMETHASONE ACETATE [Suspect]
     Dosage: 12 MILLIGRAM
     Route: 048
     Dates: start: 20101102, end: 20101103
  7. DEXAMETHASONE ACETATE [Suspect]
     Dosage: 12 MILLIGRAM
     Route: 048
     Dates: start: 20101109, end: 20101110
  8. DEXAMETHASONE ACETATE [Suspect]
     Dosage: 12 MILLIGRAM
     Route: 048
     Dates: start: 20101126, end: 20101210
  9. REVLIMID [Suspect]
     Dosage: 10 MILLIGRAM
     Route: 048
     Dates: start: 20101026, end: 20101116
  10. SELBEX [Concomitant]
     Indication: PROPHYLAXIS
     Dosage: 100 MILLIGRAM
     Route: 048
     Dates: start: 20100106
  11. INDAPAMIDE [Concomitant]
     Indication: HYPERTENSION
     Dosage: 1 MILLIGRAM
     Route: 048
     Dates: start: 20100701, end: 20100923
  12. OSTELUC [Concomitant]
     Dosage: 400 MILLIGRAM
     Route: 048
     Dates: start: 20100106
  13. REVLIMID [Suspect]
     Dosage: 5 MILLIGRAM
     Route: 048
     Dates: start: 20100928, end: 20101019
  14. DEXAMETHASONE ACETATE [Suspect]
     Dosage: 12 MILLIGRAM
     Route: 048
     Dates: start: 20101012, end: 20101013
  15. PALGIN [Concomitant]
     Dosage: .5 MILLIGRAM
     Route: 048
     Dates: start: 20100106
  16. GASMOTIN [Concomitant]
     Indication: PROPHYLAXIS
     Dosage: 15 MILLIGRAM
     Route: 048
     Dates: start: 20100716, end: 20100912
  17. LAXOBERON [Concomitant]
     Dosage: 10 DROPS
     Route: 048
     Dates: start: 20100625, end: 20100927
  18. REVLIMID [Suspect]
     Indication: MULTIPLE MYELOMA
     Dosage: 5 MILLIGRAM
     Route: 048
     Dates: start: 20100827, end: 20100916
  19. OMEPRAZOLE [Concomitant]
     Dosage: 20 MILLIGRAM
     Route: 048
     Dates: start: 20100904, end: 20100907
  20. CANDESARTAN CILEXETIL [Concomitant]
     Indication: HYPERTENSION
     Dosage: 8 MILLIGRAM
     Route: 048
     Dates: start: 20100702
  21. DEXAMETHASONE ACETATE [Suspect]
     Indication: MULTIPLE MYELOMA
     Dosage: 20 MILLIGRAM
     Route: 048
     Dates: start: 20100827, end: 20100830
  22. DEXAMETHASONE ACETATE [Suspect]
     Dosage: 20 MILLIGRAM
     Route: 048
     Dates: start: 20100904, end: 20100907
  23. OMEPRAZOLE [Concomitant]
     Dosage: 20 MILLIGRAM
     Route: 048
     Dates: start: 20100912, end: 20100915
  24. DEXAMETHASONE ACETATE [Suspect]
     Dosage: 20 MILLIGRAM
     Route: 048
     Dates: start: 20100912, end: 20100915
  25. FENTANYL-100 [Concomitant]
     Dosage: 2.1 MILLIGRAM
     Route: 062
     Dates: start: 20100715

REACTIONS (11)
  - LEUKOPENIA [None]
  - CYSTITIS [None]
  - OSTEOSCLEROSIS [None]
  - HYPOCALCAEMIA [None]
  - ANAEMIA [None]
  - BLOOD ALKALINE PHOSPHATASE INCREASED [None]
  - HYPOMAGNESAEMIA [None]
  - BONE PAIN [None]
  - TETANY [None]
  - THROMBOCYTOPENIA [None]
  - BLOOD CREATININE INCREASED [None]
